FAERS Safety Report 10042004 (Version 2)
Quarter: 2014Q1

REPORT INFORMATION
  Report Type: Report from Study
  Country: CA (occurrence: CA)
  Receive Date: 20140327
  Receipt Date: 20140327
  Transmission Date: 20141002
  Serious: Yes (Hospitalization, Other)
  Sender: FDA-Public Use
  Company Number: CA-BRISTOL-MYERS SQUIBB COMPANY-16003436

PATIENT
  Age: 39 Year
  Sex: Female

DRUGS (5)
  1. ORENCIA [Suspect]
     Indication: RHEUMATOID ARTHRITIS
     Dosage: LASTDOSE:23AG11,18O11,3JA12,7MR12,15AP13INF:10.LOT171233,1F66433,1G64569,2J72521EXMAR14.2L70269JL15;
     Route: 042
     Dates: start: 20110628
  2. FLUOXETINE [Suspect]
  3. MELOXICAM [Concomitant]
  4. GABAPENTIN [Concomitant]
  5. METHOTREXATE [Concomitant]
     Dosage: INCREASED TO 10 MG

REACTIONS (13)
  - Rheumatoid arthritis [Unknown]
  - Arthropathy [Unknown]
  - Fatigue [Not Recovered/Not Resolved]
  - Somnolence [Unknown]
  - Headache [Unknown]
  - Photophobia [Unknown]
  - Malaise [Unknown]
  - Poor quality sleep [Unknown]
  - Influenza like illness [Unknown]
  - Pyrexia [Unknown]
  - Chills [Unknown]
  - Oropharyngeal pain [Unknown]
  - Nasal congestion [Unknown]
